FAERS Safety Report 21440044 (Version 2)
Quarter: 2023Q2

REPORT INFORMATION
  Report Type: Spontaneous
  Country: US (occurrence: US)
  Receive Date: 20221011
  Receipt Date: 20230530
  Transmission Date: 20230722
  Serious: No
  Sender: FDA-Public Use
  Company Number: US-Blueprint Medicines Corporation-484

PATIENT
  Sex: Female

DRUGS (2)
  1. AYVAKIT [Suspect]
     Active Substance: AVAPRITINIB
     Indication: Systemic mastocytosis
     Route: 065
     Dates: start: 20220217
  2. AYVAKIT [Suspect]
     Active Substance: AVAPRITINIB
     Dosage: 25MG 1 TABLET BY MOUTH AT 6 PM 2 HOURS AFTER DINNER
     Route: 048
     Dates: start: 20220217

REACTIONS (3)
  - Amnesia [Unknown]
  - Sleep terror [Unknown]
  - Cognitive disorder [Unknown]
